FAERS Safety Report 6939937-8 (Version None)
Quarter: 2010Q3

REPORT INFORMATION
  Report Type: 
  Country: None (occurrence: None)
  Receive Date: 20100825
  Receipt Date: 20100813
  Transmission Date: 20110219
  Serious: Yes (Death)
  Sender: FDA-Public Use
  Company Number: PH-PFIZER INC-2010101852

PATIENT
  Age: 23 Year
  Sex: Male

DRUGS (1)
  1. ZITHROMAX [Suspect]
     Route: 042

REACTIONS (1)
  - CARDIAC ARREST [None]
